FAERS Safety Report 10363685 (Version 1)
Quarter: 2014Q3

REPORT INFORMATION
  Report Type: Spontaneous
  Country: JP (occurrence: JP)
  Receive Date: 20140805
  Receipt Date: 20140805
  Transmission Date: 20150326
  Serious: Yes (Other)
  Sender: FDA-Public Use
  Company Number: JP-PFIZER INC-2014216660

PATIENT
  Age: 80 Year
  Sex: Female

DRUGS (1)
  1. LYRICA [Suspect]
     Active Substance: PREGABALIN
     Indication: PAIN IN EXTREMITY
     Dosage: 25 MG TWICE DAILY IN THE MORNING AND IN THE EVENING
     Route: 048

REACTIONS (4)
  - Constipation [Not Recovered/Not Resolved]
  - Haemorrhoids [Unknown]
  - Weight increased [Unknown]
  - Eyelid oedema [Unknown]
